FAERS Safety Report 4408080-4 (Version None)
Quarter: 2004Q3

REPORT INFORMATION
  Report Type: 
  Country: None (occurrence: None)
  Receive Date: 20040722
  Receipt Date: 20040709
  Transmission Date: 20050211
  Serious: Yes (Death, Hospitalization)
  Sender: FDA-Public Use
  Company Number: D01200402600

PATIENT
  Age: 75 Year
  Sex: Female

DRUGS (3)
  1. (SR57746 OR PLACEBO) [Suspect]
     Indication: CHEMOTHERAPY NEUROTOXICITY ATTENUATION
     Dosage: 1 MG QD ORAL
     Route: 048
     Dates: start: 20040323, end: 20040625
  2. OXALIPLAIN-SOLUTION-85 MG/M2 [Suspect]
     Dosage: 400 MG/M2 AS IV BOLUS THEN 600 MG/M2 AS 22 HOURS CONTINUOUS INFUSION D1-D2 Q2W, INTRAVENOUS
     Route: 042
     Dates: start: 20040607, end: 20040607
  3. FLUOROURACIL [Suspect]
     Dosage: 200 MG/M2 AS 2 HOURS INFUSION ON D1-D2 Q2W INTRAVENOUS
     Route: 042
     Dates: start: 20040607, end: 20040608

REACTIONS (4)
  - BRONCHOPNEUMONIA [None]
  - GENERAL PHYSICAL HEALTH DETERIORATION [None]
  - NEUTROPENIA [None]
  - THERAPY NON-RESPONDER [None]
